FAERS Safety Report 5812428-3 (Version None)
Quarter: 2008Q3

REPORT INFORMATION
  Report Type: 
  Country: None (occurrence: None)
  Receive Date: 20080711
  Receipt Date: 20080701
  Transmission Date: 20090109
  Serious: Yes (Other)
  Sender: FDA-Public Use
  Company Number: 2008AP000282

PATIENT
  Age: 62 Year
  Sex: Male

DRUGS (10)
  1. PAROXETINE HCL [Suspect]
     Dosage: 10 MG; QD PO, PO;, 5 MG; PO; QD, 2.5 MG; PO; QD, 10 MG; PO; QD
     Route: 048
     Dates: start: 19960430
  2. VENLAFAXINE HCL [Concomitant]
  3. ALLOPURINOL [Concomitant]
  4. BENDROFLUMETHIAZIDE (BENDROFLUMETHIAZIDE) [Concomitant]
  5. ESCITALOPRAM OXALATE (ESCITALOPRAM OXALATE) [Concomitant]
  6. CITALOPRAM HYDROBROMIDE [Concomitant]
  7. PROMAZINE HCL [Concomitant]
  8. BECLOMETHASONE DIPROPIONATE [Concomitant]
  9. HYPERICUM EXTRACT (HYPERICUM EXTRACT) [Concomitant]
  10. ZOPICLONE (ZOPICLONE) [Concomitant]

REACTIONS (35)
  - ABDOMINAL PAIN UPPER [None]
  - AGITATION [None]
  - ANXIETY [None]
  - CONSTIPATION [None]
  - CRYING [None]
  - DEPRESSED MOOD [None]
  - DEPRESSION [None]
  - DRUG WITHDRAWAL SYNDROME [None]
  - DYSKINESIA [None]
  - DYSPEPSIA [None]
  - EMOTIONAL DISTRESS [None]
  - ERUCTATION [None]
  - FATIGUE [None]
  - FREQUENT BOWEL MOVEMENTS [None]
  - GASTROINTESTINAL DISORDER [None]
  - GENERALISED ANXIETY DISORDER [None]
  - HOT FLUSH [None]
  - HYPERHIDROSIS [None]
  - HYPERVENTILATION [None]
  - INSOMNIA [None]
  - LETHARGY [None]
  - LIBIDO DECREASED [None]
  - MALAISE [None]
  - MOOD ALTERED [None]
  - MUSCLE TWITCHING [None]
  - PALPITATIONS [None]
  - PANIC ATTACK [None]
  - POOR QUALITY SLEEP [None]
  - PRURITUS [None]
  - SELF-INJURIOUS IDEATION [None]
  - SLEEP DISORDER [None]
  - SOMNOLENCE [None]
  - SUICIDAL IDEATION [None]
  - TEARFULNESS [None]
  - TREMOR [None]
